FAERS Safety Report 24704606 (Version 4)
Quarter: 2025Q3

REPORT INFORMATION
  Report Type: Spontaneous
  Country: US (occurrence: US)
  Receive Date: 20241206
  Receipt Date: 20250810
  Transmission Date: 20251020
  Serious: Yes (Hospitalization, Other)
  Sender: ALEXION PHARMACEUTICALS
  Company Number: US-ASTRAZENECA-202412USA001704US

PATIENT
  Age: 64 Year
  Sex: Female

DRUGS (6)
  1. FASLODEX [Suspect]
     Active Substance: FULVESTRANT
     Indication: Breast cancer female
  2. FASLODEX [Suspect]
     Active Substance: FULVESTRANT
     Route: 065
  3. IBRANCE [Suspect]
     Active Substance: PALBOCICLIB
     Indication: Breast cancer female
     Route: 065
  4. IBRANCE [Suspect]
     Active Substance: PALBOCICLIB
     Dosage: 100 MILLIGRAM, QD
     Dates: start: 20210408
  5. IBRANCE [Suspect]
     Active Substance: PALBOCICLIB
     Dosage: 100 MILLIGRAM, QD
     Dates: start: 20240921
  6. ZOMETA [Suspect]
     Active Substance: ZOLEDRONIC ACID
     Route: 065

REACTIONS (8)
  - COVID-19 [Unknown]
  - Neutropenia [Unknown]
  - Metastases to bone [Unknown]
  - Metastases to lung [Unknown]
  - Back pain [Unknown]
  - Dyspnoea [Unknown]
  - Neoplasm progression [Unknown]
  - Product dose omission issue [Unknown]
